FAERS Safety Report 14004251 (Version 1)
Quarter: 2017Q3

REPORT INFORMATION
  Report Type: Spontaneous
  Country: US (occurrence: US)
  Receive Date: 20170922
  Receipt Date: 20170922
  Transmission Date: 20171128
  Serious: No
  Sender: FDA-Public Use
  Company Number: US-JNJFOC-20170711890

PATIENT
  Sex: Female
  Weight: 72.58 kg

DRUGS (6)
  1. VITAMIN B [Concomitant]
     Active Substance: VITAMIN B
     Route: 065
  2. ATENOLOL. [Concomitant]
     Active Substance: ATENOLOL
     Indication: BLOOD PRESSURE ABNORMAL
     Route: 065
  3. VITAMIN C [Concomitant]
     Active Substance: ASCORBIC ACID
     Route: 065
  4. INVOKANA [Suspect]
     Active Substance: CANAGLIFLOZIN
     Indication: TYPE 2 DIABETES MELLITUS
     Route: 048
  5. INVOKANA [Suspect]
     Active Substance: CANAGLIFLOZIN
     Indication: TYPE 2 DIABETES MELLITUS
     Route: 048
  6. JANUVIA [Concomitant]
     Active Substance: SITAGLIPTIN PHOSPHATE
     Indication: TYPE 2 DIABETES MELLITUS
     Route: 065

REACTIONS (5)
  - Fungal infection [Recovering/Resolving]
  - Wrong technique in product usage process [Unknown]
  - Off label use [Unknown]
  - Blood glucose abnormal [Not Recovered/Not Resolved]
  - Incorrect dose administered [Unknown]
